FAERS Safety Report 10581086 (Version 2)
Quarter: 2014Q4

REPORT INFORMATION
  Report Type: Spontaneous
  Country: CH (occurrence: None)
  Receive Date: 20141110
  Receipt Date: 20141124
  Transmission Date: 20150529
  Serious: Yes (Other)
  Sender: FDA-Public Use
  Company Number: 20140713

PATIENT
  Age: 22 Year
  Sex: Female

DRUGS (4)
  1. FERINJECT [Suspect]
     Active Substance: FERRIC CARBOXYMALTOSE
     Indication: ALOPECIA
     Dosage: 500 MG (1 IN 1 TOTAL)
     Route: 041
     Dates: start: 20140828, end: 20140828
  2. FERINJECT [Suspect]
     Active Substance: FERRIC CARBOXYMALTOSE
     Indication: DISTURBANCE IN ATTENTION
     Dosage: 500 MG (1 IN 1 TOTAL)
     Route: 041
     Dates: start: 20140828, end: 20140828
  3. FERINJECT [Suspect]
     Active Substance: FERRIC CARBOXYMALTOSE
     Indication: DEPRESSION
     Dosage: 500 MG (1 IN 1 TOTAL)
     Route: 041
     Dates: start: 20140828, end: 20140828
  4. FERINJECT [Suspect]
     Active Substance: FERRIC CARBOXYMALTOSE
     Indication: NECK PAIN
     Dosage: 500 MG (1 IN 1 TOTAL)
     Route: 041
     Dates: start: 20140828, end: 20140828

REACTIONS (6)
  - Cardiovascular disorder [None]
  - Nausea [None]
  - Vomiting [None]
  - Off label use [None]
  - Fatigue [None]
  - Migraine [None]

NARRATIVE: CASE EVENT DATE: 20140828
